FAERS Safety Report 7482544-1 (Version None)
Quarter: 2011Q2

REPORT INFORMATION
  Report Type: 
  Country: None (occurrence: None)
  Receive Date: 20110516
  Receipt Date: 20110429
  Transmission Date: 20111010
  Serious: Yes (Hospitalization)
  Sender: FDA-Public Use
  Company Number: US-BAYER-2011-015794

PATIENT
  Age: 26 Year
  Sex: Female
  Weight: 100.68 kg

DRUGS (8)
  1. YAZ [Suspect]
     Indication: PREMENSTRUAL SYNDROME
  2. YASMIN [Suspect]
     Indication: CONTRACEPTION
     Dosage: UNK
     Dates: start: 20030801, end: 20081201
  3. YASMIN [Suspect]
     Indication: ACNE
  4. YAZ [Suspect]
     Indication: ACNE
  5. PRENATAL VITAMINS [Concomitant]
  6. YASMIN [Suspect]
     Indication: PREMENSTRUAL SYNDROME
  7. ZANTAC [Concomitant]
     Dosage: 150 MG, BID
     Route: 048
  8. YAZ [Suspect]
     Indication: CONTRACEPTION
     Dosage: UNK
     Dates: start: 20030801, end: 20081201

REACTIONS (7)
  - GALLBLADDER DISORDER [None]
  - CHOLECYSTITIS CHRONIC [None]
  - PAIN [None]
  - ANXIETY [None]
  - FEAR [None]
  - CHOLELITHIASIS [None]
  - INJURY [None]
